FAERS Safety Report 13403396 (Version 2)
Quarter: 2017Q2

REPORT INFORMATION
  Report Type: Spontaneous
  Country: CN (occurrence: CN)
  Receive Date: 20170405
  Receipt Date: 20170413
  Transmission Date: 20170830
  Serious: Yes (Hospitalization)
  Sender: FDA-Public Use
  Company Number: CN-ASTRAZENECA-2017SE23294

PATIENT
  Age: 83 Year
  Sex: Male

DRUGS (2)
  1. SYMBICORT [Suspect]
     Active Substance: BUDESONIDE\FORMOTEROL FUMARATE DIHYDRATE
     Indication: ASTHMA
     Dosage: 320 UG (160 UG TWO INHALATIONS) TWO TIMES A DAY (IN THE MORNING AND EVENING RESPECTIVELY)
     Route: 055
  2. SYMBICORT [Suspect]
     Active Substance: BUDESONIDE\FORMOTEROL FUMARATE DIHYDRATE
     Indication: ASTHMA
     Dosage: 320 UG (160 UG TWO INHALATIONS) TWO TIMES A DAY (IN THE MORNING AND EVENING RESPECTIVELY)
     Route: 055

REACTIONS (4)
  - Productive cough [Unknown]
  - Dyspnoea exertional [Not Recovered/Not Resolved]
  - Device occlusion [Unknown]
  - Inflammation [Unknown]
